FAERS Safety Report 17801192 (Version 1)
Quarter: 2020Q2

REPORT INFORMATION
  Report Type: Spontaneous
  Country: US (occurrence: US)
  Receive Date: 20200519
  Receipt Date: 20200519
  Transmission Date: 20200714
  Serious: Yes (Other)
  Sender: FDA-Public Use
  Company Number: US-TEVA-2020-US-1235360

PATIENT
  Sex: Female

DRUGS (2)
  1. PREDNISONE. [Suspect]
     Active Substance: PREDNISONE
     Route: 065
  2. CINQAIR [Concomitant]
     Active Substance: RESLIZUMAB

REACTIONS (3)
  - Dyspnoea [Recovering/Resolving]
  - Adverse drug reaction [Recovering/Resolving]
  - Hip fracture [Recovering/Resolving]
